FAERS Safety Report 9689849 (Version 2)
Quarter: 2013Q4

REPORT INFORMATION
  Report Type: Spontaneous
  Country: US (occurrence: US)
  Receive Date: 20131115
  Receipt Date: 20131218
  Transmission Date: 20140711
  Serious: No
  Sender: FDA-Public Use
  Company Number: US-009507513-1311USA006055

PATIENT
  Sex: Female

DRUGS (1)
  1. NEXPLANON [Suspect]
     Dosage: 1 ROD
     Route: 059
     Dates: start: 20130902, end: 2013

REACTIONS (5)
  - Limb injury [Recovered/Resolved]
  - Implant site pain [Unknown]
  - Contusion [Recovered/Resolved]
  - Limb discomfort [Recovered/Resolved]
  - Device breakage [Recovered/Resolved]
